FAERS Safety Report 7709806-4 (Version None)
Quarter: 2011Q3

REPORT INFORMATION
  Report Type: 
  Country: None (occurrence: None)
  Receive Date: 20110825
  Receipt Date: 20110823
  Transmission Date: 20111222
  Serious: Yes (Other)
  Sender: FDA-Public Use
  Company Number: US-SANOFI-AVENTIS-2011SA054197

PATIENT

DRUGS (4)
  1. PLAVIX [Suspect]
     Route: 065
  2. ASPIRIN [Suspect]
     Route: 065
  3. ASPIRIN [Suspect]
     Indication: ANTIPLATELET THERAPY
     Route: 065
  4. PLAVIX [Suspect]
     Indication: ANTIPLATELET THERAPY
     Route: 065

REACTIONS (1)
  - IDIOPATHIC THROMBOCYTOPENIC PURPURA [None]
